FAERS Safety Report 13543138 (Version 1)
Quarter: 2017Q2

REPORT INFORMATION
  Report Type: Spontaneous
  Country: US (occurrence: US)
  Receive Date: 20170514
  Receipt Date: 20170514
  Transmission Date: 20170830
  Serious: Yes (Other)
  Sender: FDA-Public Use
  Company Number: US-DEXPHARM-20170704

PATIENT

DRUGS (1)
  1. OMEPRAZOLE DELAYED RELEASE TABLETS 20 MG WILDBERRY MINT [Suspect]
     Active Substance: OMEPRAZOLE
     Indication: GASTROOESOPHAGEAL REFLUX DISEASE
     Route: 048
     Dates: start: 2017

REACTIONS (1)
  - Oesophageal injury [Unknown]

NARRATIVE: CASE EVENT DATE: 2017
